FAERS Safety Report 6866544-8 (Version None)
Quarter: 2010Q2

REPORT INFORMATION
  Report Type: 
  Country: None (occurrence: None)
  Receive Date: 20100528
  Receipt Date: 20100208
  Transmission Date: 20101027
  Serious: No
  Sender: FDA-Public Use
  Company Number: 2010005378

PATIENT
  Age: 53 Year
  Sex: Female
  Weight: 90.7 kg

DRUGS (2)
  1. TOVIAZ [Suspect]
     Indication: HYPERTONIC BLADDER
     Dosage: 4 MG, 1X/DAY, ORAL
     Route: 048
     Dates: start: 20091101, end: 20100108
  2. NEBIVOLOL HCL [Concomitant]

REACTIONS (1)
  - GASTROOESOPHAGEAL REFLUX DISEASE [None]
